FAERS Safety Report 9559110 (Version 2)
Quarter: 2013Q4

REPORT INFORMATION
  Report Type: Spontaneous
  Country: US (occurrence: US)
  Receive Date: 20130927
  Receipt Date: 20131024
  Transmission Date: 20140711
  Serious: Yes (Death)
  Sender: FDA-Public Use
  Company Number: US-ROCHE-1281857

PATIENT
  Sex: Male

DRUGS (2)
  1. AVASTIN [Suspect]
     Indication: NEOPLASM MALIGNANT
     Route: 065
  2. AVASTIN [Suspect]
     Indication: METASTASIS

REACTIONS (1)
  - Death [Fatal]
